FAERS Safety Report 12340098 (Version 1)
Quarter: 2016Q2

REPORT INFORMATION
  Report Type: Spontaneous
  Country: IT (occurrence: IT)
  Receive Date: 20160506
  Receipt Date: 20160506
  Transmission Date: 20160815
  Serious: Yes (Hospitalization)
  Sender: FDA-Public Use
  Company Number: IT-EMCURE-000836

PATIENT
  Age: 33 Year
  Sex: Female

DRUGS (5)
  1. CYTARABINE/CYTARABINE HYDROCHLORIDE/CYTARABINE OCFOSFATE [Concomitant]
     Indication: MULTIPLE SCLEROSIS
  2. ETOPOSIDE. [Concomitant]
     Active Substance: ETOPOSIDE
     Indication: MULTIPLE SCLEROSIS
  3. MELPHALAN [Concomitant]
     Active Substance: MELPHALAN
     Indication: MULTIPLE SCLEROSIS
  4. CARMUSTINE [Suspect]
     Active Substance: CARMUSTINE
     Indication: MULTIPLE SCLEROSIS
  5. ANTITHYMOCYTE IMMUNOGLOBULIN [Concomitant]
     Active Substance: THYMOCYTE IMMUNE GLOBULIN NOS
     Indication: MULTIPLE SCLEROSIS

REACTIONS (1)
  - Anaphylactic reaction [Unknown]
